FAERS Safety Report 5726844-1 (Version None)
Quarter: 2008Q2

REPORT INFORMATION
  Report Type: 
  Country: None (occurrence: None)
  Receive Date: 20080502
  Receipt Date: 20080421
  Transmission Date: 20081010
  Serious: Yes (Other)
  Sender: FDA-Public Use
  Company Number: GB-PFIZER INC-2008034298

PATIENT
  Sex: Female

DRUGS (1)
  1. CHAMPIX [Suspect]
     Indication: SMOKING CESSATION THERAPY
     Route: 048
     Dates: start: 20080221, end: 20080308

REACTIONS (4)
  - ARTHRALGIA [None]
  - DIZZINESS [None]
  - MALAISE [None]
  - RECTAL HAEMORRHAGE [None]
